FAERS Safety Report 7525714 (Version 2)
Quarter: 2013Q3

REPORT INFORMATION
  Report Type: Spontaneous
  Country: US (occurrence: US)
  Receive Date: 20100804
  Receipt Date: 20130904
  Transmission Date: 20140515
  Serious: Yes (Life-Threatening, Hospitalization)
  Sender: FDA-Public Use
  Company Number: US-RANBAXY-2010US-36250

PATIENT
  Age: 42 Year
  Sex: Male

DRUGS (3)
  1. VERAPAMIL [Suspect]
     Indication: SUPRAVENTRICULAR TACHYCARDIA
     Dosage: UNK
     Route: 065
  2. NIFEDIPINE [Suspect]
     Indication: SUPRAVENTRICULAR TACHYCARDIA
     Dosage: UNK
     Route: 065
  3. DILTIAZEM [Suspect]
     Indication: SUPRAVENTRICULAR TACHYCARDIA
     Dosage: UNK
     Route: 065

REACTIONS (12)
  - Hypoperfusion [Recovered/Resolved]
  - Bundle branch block left [Recovered/Resolved]
  - Coronary artery disease [Recovered/Resolved]
  - Hyperdynamic left ventricle [Recovered/Resolved]
  - Hypotension [Recovered/Resolved]
  - Confusional state [Recovered/Resolved]
  - Bradycardia [Recovered/Resolved]
  - Metabolic acidosis [Recovered/Resolved]
  - Hypoxia [Recovered/Resolved]
  - Pulmonary oedema [Recovered/Resolved]
  - Overdose [Recovered/Resolved]
  - Blood creatine phosphokinase increased [Recovered/Resolved]
